FAERS Safety Report 23032114 (Version 2)
Quarter: 2024Q1

REPORT INFORMATION
  Report Type: Report from Study
  Country: US (occurrence: US)
  Receive Date: 20231005
  Receipt Date: 20240105
  Transmission Date: 20240410
  Serious: Yes (Other)
  Sender: FDA-Public Use
  Company Number: US-TAKEDA-2023TUS094698

PATIENT
  Sex: Female

DRUGS (1)
  1. BRIGATINIB [Suspect]
     Active Substance: BRIGATINIB
     Indication: Schwannoma
     Dosage: 180 MILLIGRAM, QD
     Route: 048

REACTIONS (3)
  - Eyelid tumour [Unknown]
  - Abdominal discomfort [Recovering/Resolving]
  - Off label use [Unknown]
